FAERS Safety Report 10969159 (Version 1)
Quarter: 2015Q1

REPORT INFORMATION
  Report Type: Spontaneous
  Country: JP (occurrence: None)
  Receive Date: 20150327
  Receipt Date: 20150327
  Transmission Date: 20150721
  Serious: Yes (Death)
  Sender: FDA-Public Use
  Company Number: JP-20150053

PATIENT
  Age: 74 Year
  Sex: Female

DRUGS (3)
  1. GELATIN [Concomitant]
     Active Substance: GELATIN
  2. LIPIODOL ULTRA-FLUIDE [Suspect]
     Active Substance: ETHIODIZED OIL
     Indication: THERAPEUTIC EMBOLISATION
     Dosage: 3 ML (3 ML, 1 IN 1 D), INTRA-ARTERIAL
     Route: 013
     Dates: start: 20071030, end: 20071030
  3. CISPLATIN. [Concomitant]
     Active Substance: CISPLATIN

REACTIONS (6)
  - Haemolytic icteroanaemia [None]
  - Bacterial sepsis [None]
  - Hyperkalaemia [None]
  - Product use issue [None]
  - Clostridial infection [None]
  - Intravascular haemolysis [None]

NARRATIVE: CASE EVENT DATE: 2007
